FAERS Safety Report 7230750-3 (Version None)
Quarter: 2011Q1

REPORT INFORMATION
  Report Type: 
  Country: None (occurrence: None)
  Receive Date: 20110118
  Receipt Date: 20110112
  Transmission Date: 20110831
  Serious: No
  Sender: FDA-Public Use
  Company Number: US-AMGEN-TCS418221

PATIENT

DRUGS (2)
  1. ENBREL [Suspect]
     Indication: PSORIATIC ARTHROPATHY
     Dosage: 50 MG, 2 TIMES/WK
     Route: 058
     Dates: start: 20080601
  2. ENBREL [Suspect]
     Indication: PSORIASIS

REACTIONS (15)
  - PAIN IN EXTREMITY [None]
  - OEDEMA PERIPHERAL [None]
  - PALLOR [None]
  - PSORIATIC ARTHROPATHY [None]
  - MASTICATION DISORDER [None]
  - PAIN IN JAW [None]
  - HYPOAESTHESIA [None]
  - GAIT DISTURBANCE [None]
  - CHEST PAIN [None]
  - WEIGHT DECREASED [None]
  - INSOMNIA [None]
  - TRISMUS [None]
  - DECREASED APPETITE [None]
  - PSORIASIS [None]
  - PALPITATIONS [None]
